FAERS Safety Report 18904949 (Version 1)
Quarter: 2021Q1

REPORT INFORMATION
  Report Type: Spontaneous
  Country: US (occurrence: US)
  Receive Date: 20210217
  Receipt Date: 20210217
  Transmission Date: 20210420
  Serious: Yes (Death)
  Sender: FDA-Public Use
  Company Number: None

PATIENT
  Age: 67 Year
  Sex: Female

DRUGS (9)
  1. METHOTREXATE. [Concomitant]
     Active Substance: METHOTREXATE
  2. DILAUDID [Concomitant]
     Active Substance: HYDROMORPHONE HYDROCHLORIDE
  3. CYCLOPHOSPHAMIDE. [Suspect]
     Active Substance: CYCLOPHOSPHAMIDE
     Indication: BREAST CANCER
     Route: 048
     Dates: start: 20201219
  4. HALOPERIDOL. [Concomitant]
     Active Substance: HALOPERIDOL
  5. LYRICA [Concomitant]
     Active Substance: PREGABALIN
  6. MORPHINE [Concomitant]
     Active Substance: MORPHINE
  7. XANAX [Concomitant]
     Active Substance: ALPRAZOLAM
  8. BELSOMRA [Concomitant]
     Active Substance: SUVOREXANT
  9. ZOFRAN [Concomitant]
     Active Substance: ONDANSETRON HYDROCHLORIDE

REACTIONS (1)
  - Death [None]

NARRATIVE: CASE EVENT DATE: 20210212
